FAERS Safety Report 11097173 (Version 5)
Quarter: 2015Q4

REPORT INFORMATION
  Report Type: Spontaneous
  Country: JP (occurrence: JP)
  Receive Date: 20150507
  Receipt Date: 20151218
  Transmission Date: 20160304
  Serious: Yes (Death, Life-Threatening, Hospitalization)
  Sender: FDA-Public Use
  Company Number: JP-PFIZER INC-2015152350

PATIENT
  Age: 74 Year
  Sex: Male
  Weight: 56.25 kg

DRUGS (12)
  1. BIO-THREE [Concomitant]
     Active Substance: HERBALS
     Dosage: UNK, 3X/DAY
     Route: 048
  2. MUCOSTA [Concomitant]
     Active Substance: REBAMIPIDE
     Dosage: 100 MG, 3X/DAY
     Route: 048
  3. MAINTATE [Concomitant]
     Active Substance: BISOPROLOL FUMARATE
     Dosage: 2.5 MG, 2X/DAY
     Route: 048
  4. RISUMIC [Concomitant]
     Active Substance: AMEZINIUM METILSULFATE
     Dosage: ONLY GIVEN ON THE DIALYSIS DATES
     Route: 048
  5. NEXIUM [Concomitant]
     Active Substance: ESOMEPRAZOLE MAGNESIUM
     Dosage: 20 MG, 1X/DAY
     Route: 048
  6. INLYTA [Suspect]
     Active Substance: AXITINIB
     Indication: METASTATIC RENAL CELL CARCINOMA
     Dosage: 5 MG, 2X/DAY
     Route: 048
     Dates: start: 20150203, end: 20150409
  7. DEPAKENE [Concomitant]
     Active Substance: VALPROIC ACID
     Dosage: 20 MG, 2X/DAY
     Route: 048
  8. INLYTA [Suspect]
     Active Substance: AXITINIB
     Dosage: 5 MG, 1X/DAY
     Route: 048
     Dates: start: 20150425, end: 20150428
  9. KAYEXALATE [Concomitant]
     Active Substance: SODIUM POLYSTYRENE SULFONATE
     Dosage: 1 DF, 2X/DAY
     Route: 048
  10. THYRADIN S [Concomitant]
     Active Substance: LEVOTHYROXINE SODIUM
     Dosage: 50 ?G, 1X/DAY
     Route: 048
  11. LENDORMIN D [Concomitant]
     Active Substance: BROTIZOLAM
     Dosage: 0.125 MG, 1X/DAY
     Route: 048
  12. LIPITOR [Concomitant]
     Active Substance: ATORVASTATIN CALCIUM
     Dosage: 5 MG, 1X/DAY
     Route: 048

REACTIONS (2)
  - Arrhythmia [Fatal]
  - Hepatitis acute [Recovering/Resolving]

NARRATIVE: CASE EVENT DATE: 20150428
